FAERS Safety Report 18009198 (Version 1)
Quarter: 2020Q3

REPORT INFORMATION
  Report Type: Spontaneous
  Country: US (occurrence: US)
  Receive Date: 20200710
  Receipt Date: 20200710
  Transmission Date: 20201103
  Serious: Yes (Death)
  Sender: FDA-Public Use
  Company Number: US-SAOL THERAPEUTICS-2020SAO00038

PATIENT
  Age: 80 Year
  Sex: Female
  Weight: 52.15 kg

DRUGS (2)
  1. ORAL BACLOFEN [Concomitant]
     Active Substance: BACLOFEN
     Dosage: 2 MG, AS NEEDED
     Route: 048
  2. LIORESAL [Suspect]
     Active Substance: BACLOFEN
     Indication: MUSCLE SPASTICITY
     Dosage: 282.1 ?G, \DAY
     Route: 037
     Dates: start: 20170214

REACTIONS (1)
  - Death [Fatal]

NARRATIVE: CASE EVENT DATE: 20191231
